FAERS Safety Report 11104747 (Version 2)
Quarter: 2015Q2

REPORT INFORMATION
  Report Type: Spontaneous
  Country: FR (occurrence: FR)
  Receive Date: 20150511
  Receipt Date: 20150528
  Transmission Date: 20150821
  Serious: Yes (Other)
  Sender: FDA-Public Use
  Company Number: FR-BAXTER-2015BAX024074

PATIENT
  Age: 82 Year
  Sex: Male

DRUGS (16)
  1. VINCRISTINE [Suspect]
     Active Substance: VINCRISTINE
     Indication: LYMPHOMA
     Dosage: COURSE 1/DAY 1
     Route: 042
     Dates: start: 20150126, end: 20150126
  2. VINCRISTINE [Suspect]
     Active Substance: VINCRISTINE
     Dosage: COURSE 1/DAY 8
     Route: 042
     Dates: start: 20150202, end: 20150202
  3. ENDOXAN 1000 MG, POUDRE POUR SOLUTION INJECTABLE [Suspect]
     Active Substance: CYCLOPHOSPHAMIDE
     Dosage: COURSE 1/DAY 8
     Route: 042
     Dates: start: 20150202, end: 20150202
  4. VINCRISTINE [Suspect]
     Active Substance: VINCRISTINE
     Dosage: COURSE 2/DAY 1
     Route: 042
     Dates: start: 20150303, end: 20150303
  5. NATULAN [Suspect]
     Active Substance: PROCARBAZINE HYDROCHLORIDE
     Route: 048
     Dates: start: 20150304, end: 20150310
  6. UROMITEXAN 5 G/50 ML, SOLUTION INJECTABLE POUR PERFUSION EN FLACON [Suspect]
     Active Substance: MESNA
     Indication: LYMPHOMA
     Dosage: COURSE 1/DAY 1
     Route: 042
     Dates: start: 20150126, end: 20150126
  7. ONDANSETRON [Suspect]
     Active Substance: ONDANSETRON
     Dosage: COURSE 1/DAY 8
     Route: 048
     Dates: start: 20150202, end: 20150202
  8. SOLU-MEDROL [Suspect]
     Active Substance: METHYLPREDNISOLONE SODIUM SUCCINATE
     Indication: LYMPHOMA
     Route: 042
     Dates: start: 20150126, end: 20150208
  9. UROMITEXAN 5 G/50 ML, SOLUTION INJECTABLE POUR PERFUSION EN FLACON [Suspect]
     Active Substance: MESNA
     Dosage: COURSE 2/DAY 1
     Route: 042
     Dates: start: 20150303, end: 20150303
  10. ENDOXAN 1000 MG, POUDRE POUR SOLUTION INJECTABLE [Suspect]
     Active Substance: CYCLOPHOSPHAMIDE
     Indication: LYMPHOMA
     Dosage: COURSE 1/DAY 1
     Route: 042
     Dates: start: 20150126, end: 20150126
  11. ONDANSETRON [Suspect]
     Active Substance: ONDANSETRON
     Indication: LYMPHOMA
     Dosage: COURSE 1/DAY 1
     Route: 048
     Dates: start: 20150126, end: 20150126
  12. UROMITEXAN 5 G/50 ML, SOLUTION INJECTABLE POUR PERFUSION EN FLACON [Suspect]
     Active Substance: MESNA
     Dosage: COURSE 1/DAY 8
     Route: 042
     Dates: start: 20150202, end: 20150202
  13. ENDOXAN 1000 MG, POUDRE POUR SOLUTION INJECTABLE [Suspect]
     Active Substance: CYCLOPHOSPHAMIDE
     Dosage: COURSE 2/DAY 1
     Route: 042
     Dates: start: 20150303, end: 20150303
  14. ONDANSETRON [Suspect]
     Active Substance: ONDANSETRON
     Dosage: COURSE 2/DAY 1
     Route: 048
     Dates: start: 20150303, end: 20150303
  15. SOLU-MEDROL [Suspect]
     Active Substance: METHYLPREDNISOLONE SODIUM SUCCINATE
     Route: 042
     Dates: start: 20150303, end: 20150310
  16. NATULAN [Suspect]
     Active Substance: PROCARBAZINE HYDROCHLORIDE
     Indication: LYMPHOMA
     Route: 048
     Dates: start: 20150127, end: 20150208

REACTIONS (4)
  - Pyrexia [Unknown]
  - Pruritus [Unknown]
  - Rash [Unknown]
  - Erythema [Unknown]

NARRATIVE: CASE EVENT DATE: 20150303
